FAERS Safety Report 11544181 (Version 1)
Quarter: 2015Q3

REPORT INFORMATION
  Report Type: Spontaneous
  Country: FR (occurrence: None)
  Receive Date: 20150922
  Receipt Date: 20150922
  Transmission Date: 20151125
  Serious: Yes (Other)
  Sender: FDA-Public Use
  Company Number: FR-ALSI-201500200

PATIENT
  Age: 10 Year
  Sex: Female

DRUGS (1)
  1. NITROUS OXIDE. [Suspect]
     Active Substance: NITROUS OXIDE
     Indication: OSTEOMYELITIS

REACTIONS (6)
  - Metabolic disorder [None]
  - Toxicity to various agents [None]
  - Vitamin B12 deficiency [None]
  - Blood homocysteine increased [None]
  - Amino acid level increased [None]
  - Osteomyelitis [None]
